FAERS Safety Report 5062482-4 (Version None)
Quarter: 2006Q3

REPORT INFORMATION
  Report Type: 
  Country: None (occurrence: None)
  Receive Date: 20060726
  Receipt Date: 20060707
  Transmission Date: 20061208
  Serious: Yes (Other)
  Sender: FDA-Public Use
  Company Number: US-ABBOTT-06P-163-0337707-00

PATIENT
  Age: 20 Year
  Sex: Male
  Weight: 65.8 kg

DRUGS (2)
  1. VICODIN [Suspect]
     Indication: TOOTH EXTRACTION
     Route: 048
     Dates: start: 20060614, end: 20060614
  2. NICOTINE [Suspect]
     Indication: EX-SMOKER
     Route: 062
     Dates: start: 20060614, end: 20060614

REACTIONS (6)
  - APNOEA [None]
  - CONVULSION [None]
  - INCOHERENT [None]
  - LOSS OF CONSCIOUSNESS [None]
  - RESPIRATORY ARREST [None]
  - TREATMENT NONCOMPLIANCE [None]
